FAERS Safety Report 6903064-6 (Version None)
Quarter: 2010Q3

REPORT INFORMATION
  Report Type: 
  Country: None (occurrence: None)
  Receive Date: 20100803
  Receipt Date: 20080630
  Transmission Date: 20110219
  Serious: No
  Sender: FDA-Public Use
  Company Number: US-PFIZER INC-2008037608

PATIENT
  Sex: Female
  Weight: 81.8 kg

DRUGS (5)
  1. LYRICA [Suspect]
     Indication: PAIN
     Route: 048
     Dates: start: 20080428
  2. LYRICA [Suspect]
     Indication: NEUROPATHY PERIPHERAL
  3. CYMBALTA [Concomitant]
  4. LORAZEPAM [Concomitant]
  5. LEVOTHYROXINE [Concomitant]

REACTIONS (2)
  - DIZZINESS [None]
  - FALL [None]
